FAERS Safety Report 16947387 (Version 1)
Quarter: 2019Q4

REPORT INFORMATION
  Report Type: Spontaneous
  Country: US (occurrence: US)
  Receive Date: 20191022
  Receipt Date: 20191022
  Transmission Date: 20200122
  Serious: Yes (Hospitalization)
  Sender: FDA-Public Use
  Company Number: US-SHIRE-US201934889

PATIENT
  Age: 56 Year
  Sex: Female

DRUGS (1)
  1. NATPARA (PARATHYROID HORMONE) [Suspect]
     Active Substance: PARATHYROID HORMONE
     Indication: PRODUCT USED FOR UNKNOWN INDICATION
     Dosage: 100 MICROGRAM, 1X/DAY:QD
     Route: 058
     Dates: start: 20151124

REACTIONS (5)
  - Hospitalisation [Recovered/Resolved]
  - Muscle spasms [Unknown]
  - Paraesthesia oral [Unknown]
  - Product use issue [Unknown]
  - Paraesthesia [None]

NARRATIVE: CASE EVENT DATE: 20190212
